FAERS Safety Report 17307699 (Version 1)
Quarter: 2020Q1

REPORT INFORMATION
  Report Type: Spontaneous
  Country: US (occurrence: US)
  Receive Date: 20200122
  Receipt Date: 20200122
  Transmission Date: 20200409
  Serious: Yes (Hospitalization, Other)
  Sender: FDA-Public Use
  Company Number: None

PATIENT
  Age: 43 Year
  Sex: Male
  Weight: 85.05 kg

DRUGS (3)
  1. METFORMIN [Concomitant]
     Active Substance: METFORMIN HYDROCHLORIDE
  2. MINOXIDIL , HAIR REGROWTH TREATMENT [Suspect]
     Active Substance: MINOXIDIL
     Indication: HAIR GROWTH ABNORMAL
     Dosage: ?          QUANTITY:1 DROP(S);?
     Route: 061
     Dates: start: 20180706, end: 20181229
  3. LISINOPRIL. [Concomitant]
     Active Substance: LISINOPRIL

REACTIONS (3)
  - Colon cancer [None]
  - Metastases to liver [None]
  - Product administered at inappropriate site [None]

NARRATIVE: CASE EVENT DATE: 20190822
